FAERS Safety Report 5370405-3 (Version None)
Quarter: 2007Q2

REPORT INFORMATION
  Report Type: 
  Country: None (occurrence: None)
  Receive Date: 20070626
  Receipt Date: 20070213
  Transmission Date: 20071010
  Serious: No
  Sender: FDA-Public Use
  Company Number: US-AMGEN-US211053

PATIENT
  Sex: Male

DRUGS (4)
  1. ARANESP [Suspect]
     Indication: MYELODYSPLASTIC SYNDROME
     Route: 058
     Dates: start: 20060701
  2. MOTRIN [Concomitant]
     Route: 065
  3. EXCEDRIN [Concomitant]
     Route: 065
  4. TYLENOL [Concomitant]
     Route: 065

REACTIONS (4)
  - ASTHENIA [None]
  - FATIGUE [None]
  - HEADACHE [None]
  - INJECTION SITE DISCOMFORT [None]
